FAERS Safety Report 5694383-2 (Version None)
Quarter: 2008Q2

REPORT INFORMATION
  Report Type: 
  Country: None (occurrence: None)
  Receive Date: 20080402
  Receipt Date: 20080320
  Transmission Date: 20081010
  Serious: Yes (Death)
  Sender: FDA-Public Use
  Company Number: A-CH2008-19928

PATIENT
  Age: 52 Year
  Sex: Male

DRUGS (1)
  1. TRACLEER [Suspect]
     Indication: IDIOPATHIC PULMONARY FIBROSIS
     Dosage: ORAL
     Route: 048

REACTIONS (3)
  - DISEASE PROGRESSION [None]
  - IDIOPATHIC PULMONARY FIBROSIS [None]
  - OFF LABEL USE [None]
